FAERS Safety Report 5055498-5 (Version None)
Quarter: 2006Q3

REPORT INFORMATION
  Report Type: 
  Country: None (occurrence: None)
  Receive Date: 20060717
  Receipt Date: 20060717
  Transmission Date: 20061208
  Serious: Yes (Hospitalization)
  Sender: FDA-Public Use
  Company Number: None

PATIENT
  Age: 80 Year
  Sex: Male
  Weight: 80 kg

DRUGS (10)
  1. WARFARIN SODIUM [Suspect]
     Indication: ATRIAL FIBRILLATION
     Dosage: 5 MG PO DAILY
     Route: 048
  2. WARFARIN SODIUM [Suspect]
     Indication: CARDIOVASCULAR EVENT PROPHYLAXIS
     Dosage: 5 MG PO DAILY
     Route: 048
  3. COREG [Concomitant]
     Indication: ATRIAL FIBRILLATION
  4. AMLODIPINE [Concomitant]
  5. DIOVAN [Concomitant]
  6. LASIX [Concomitant]
  7. GLYBURIDE [Concomitant]
  8. M.V.I. [Concomitant]
  9. NAHCO3 [Concomitant]
  10. FESO4 [Concomitant]

REACTIONS (11)
  - ANAEMIA [None]
  - ARRHYTHMIA [None]
  - CARDIAC ARREST [None]
  - CARDIO-RESPIRATORY ARREST [None]
  - COAGULOPATHY [None]
  - HYPOVOLAEMIA [None]
  - MELAENA [None]
  - REFUSAL OF TREATMENT BY RELATIVE [None]
  - RENAL FAILURE ACUTE [None]
  - UPPER GASTROINTESTINAL HAEMORRHAGE [None]
  - VENTRICULAR FIBRILLATION [None]
